FAERS Safety Report 4274098-8 (Version None)
Quarter: 2004Q1

REPORT INFORMATION
  Report Type: 
  Country: None (occurrence: None)
  Receive Date: 20040120
  Receipt Date: 20031205
  Transmission Date: 20041129
  Serious: Yes (Other)
  Sender: FDA-Public Use
  Company Number: IE-GLAXOSMITHKLINE-B0317651A

PATIENT
  Sex: Female

DRUGS (1)
  1. DARAPRIM [Suspect]
     Indication: TOXOPLASMOSIS
     Dates: start: 20031101

REACTIONS (1)
  - ALVEOLITIS [None]
